FAERS Safety Report 8277414-5 (Version None)
Quarter: 2012Q2

REPORT INFORMATION
  Report Type: 
  Country: None (occurrence: None)
  Receive Date: 20120412
  Receipt Date: 20120403
  Transmission Date: 20120825
  Serious: Yes (Other)
  Sender: FDA-Public Use
  Company Number: US-ASTRAZENECA-2011SE67684

PATIENT
  Age: 72 Year
  Sex: Female

DRUGS (2)
  1. NEXIUM [Suspect]
     Route: 048
     Dates: start: 20110201
  2. NEXIUM [Suspect]
     Route: 048

REACTIONS (8)
  - EARLY SATIETY [None]
  - DYSPHAGIA [None]
  - COUGH [None]
  - ABDOMINAL PAIN [None]
  - BONE NEOPLASM MALIGNANT [None]
  - ABDOMINAL PAIN UPPER [None]
  - MULTIPLE MYELOMA [None]
  - GASTROOESOPHAGEAL REFLUX DISEASE [None]
